FAERS Safety Report 5214594-X (Version None)
Quarter: 2007Q1

REPORT INFORMATION
  Report Type: 
  Country: None (occurrence: None)
  Receive Date: 20070122
  Receipt Date: 20070112
  Transmission Date: 20070707
  Serious: Yes (Other)
  Sender: FDA-Public Use
  Company Number: 2007UW00814

PATIENT
  Age: 94 Year
  Sex: Female

DRUGS (1)
  1. LOSEC [Suspect]
     Route: 048

REACTIONS (1)
  - DYSPHAGIA [None]
